FAERS Safety Report 4984561-X (Version None)
Quarter: 2006Q2

REPORT INFORMATION
  Report Type: 
  Country: None (occurrence: None)
  Receive Date: 20060427
  Receipt Date: 20011116
  Transmission Date: 20061013
  Serious: No
  Sender: FDA-Public Use
  Company Number: US-GLAXOSMITHKLINE-A0355276A

PATIENT
  Age: 43 Year
  Sex: Male

DRUGS (12)
  1. DEXEDRINE [Suspect]
     Indication: ATTENTION DEFICIT/HYPERACTIVITY DISORDER
     Dosage: 10MG FOUR TIMES PER DAY
     Route: 048
     Dates: start: 20000101, end: 20010101
  2. ANTIDEPRESSANT [Concomitant]
  3. NEURONTIN [Concomitant]
  4. HYDROCODONE BITARTRATE [Concomitant]
  5. DILAUDID [Concomitant]
  6. METHADONE HCL [Concomitant]
  7. DURAGESIC-100 [Concomitant]
  8. MORPHINE [Concomitant]
  9. ZELNORM [Concomitant]
  10. GLUCOPHAGE [Concomitant]
  11. ACTOS [Concomitant]
  12. ROXICODONE [Concomitant]

REACTIONS (3)
  - CONSTIPATION [None]
  - PAIN IN EXTREMITY [None]
  - THERAPEUTIC RESPONSE UNEXPECTED [None]
